FAERS Safety Report 15506850 (Version 2)
Quarter: 2018Q4

REPORT INFORMATION
  Report Type: Spontaneous
  Country: DE (occurrence: DE)
  Receive Date: 20181016
  Receipt Date: 20181022
  Transmission Date: 20190205
  Serious: Yes (Hospitalization)
  Sender: FDA-Public Use
  Company Number: DE-JNJFOC-20181018133

PATIENT
  Age: 79 Year
  Sex: Male
  Weight: 94 kg

DRUGS (1)
  1. ZYTIGA [Suspect]
     Active Substance: ABIRATERONE ACETATE
     Indication: PROSTATE CANCER
     Route: 048
     Dates: end: 2018

REACTIONS (3)
  - Alveolitis [Unknown]
  - Lymphadenopathy mediastinal [Unknown]
  - Organising pneumonia [Unknown]

NARRATIVE: CASE EVENT DATE: 20180917
